FAERS Safety Report 7293950-2 (Version None)
Quarter: 2011Q1

REPORT INFORMATION
  Report Type: 
  Country: None (occurrence: None)
  Receive Date: 20110215
  Receipt Date: 20110210
  Transmission Date: 20110831
  Serious: Yes (Other)
  Sender: FDA-Public Use
  Company Number: US-PFIZER INC-2010173889

PATIENT
  Sex: Female

DRUGS (3)
  1. REMERON [Concomitant]
     Indication: DEPRESSION
     Dosage: 15 MG, UNK
     Dates: start: 20100101
  2. GEODON [Suspect]
     Indication: BIPOLAR I DISORDER
     Dosage: 40 MG, UNK
     Route: 048
     Dates: end: 20100101
  3. GEODON [Suspect]
     Dosage: 60 MG, UNK
     Route: 048
     Dates: start: 20101130, end: 20101204

REACTIONS (6)
  - ORTHOSTATIC HYPOTENSION [None]
  - AKATHISIA [None]
  - PARAESTHESIA [None]
  - DEPRESSION [None]
  - IRRITABILITY [None]
  - NERVOUS SYSTEM DISORDER [None]
